FAERS Safety Report 25710462 (Version 5)
Quarter: 2025Q4

REPORT INFORMATION
  Report Type: Report from Study
  Country: US (occurrence: US)
  Receive Date: 20250821
  Receipt Date: 20251128
  Transmission Date: 20260117
  Serious: Yes (Death, Life-Threatening, Hospitalization, Other)
  Sender: ACADIA PHARMACEUTICALS
  Company Number: US-ACADIA PHARMACEUTICALS INC.-ACA-2025-PIM-009422

PATIENT
  Age: 76 Year
  Sex: Male

DRUGS (6)
  1. NUPLAZID [Suspect]
     Active Substance: PIMAVANSERIN TARTRATE
     Indication: Parkinson^s disease psychosis
     Dosage: 34 MILLIGRAM, QD
     Route: 048
     Dates: start: 202508, end: 20251017
  2. ZYPREXA [Suspect]
     Active Substance: OLANZAPINE
     Indication: Agitation
     Dosage: UNK
     Route: 065
  3. HALDOL [Suspect]
     Active Substance: HALOPERIDOL
     Indication: Agitation
     Dosage: UNK
     Route: 030
  4. LEVODOPA [Concomitant]
     Active Substance: LEVODOPA
  5. RYTARY [Concomitant]
     Active Substance: CARBIDOPA\LEVODOPA
     Dosage: UNK
  6. MORPHINE [Concomitant]
     Active Substance: MORPHINE
     Dosage: DEEP

REACTIONS (11)
  - Death [Fatal]
  - Spasmodic dysphonia [Unknown]
  - Hypopnoea [Unknown]
  - Hallucination, auditory [Not Recovered/Not Resolved]
  - Parkinson^s disease [Unknown]
  - Constipation [Unknown]
  - Hypertension [Unknown]
  - Pyrexia [Unknown]
  - Complication associated with device [Unknown]
  - Agitation [Unknown]
  - Confusional state [Unknown]

NARRATIVE: CASE EVENT DATE: 20251017
